FAERS Safety Report 10469450 (Version 1)
Quarter: 2014Q3

REPORT INFORMATION
  Report Type: Spontaneous
  Country: US (occurrence: None)
  Receive Date: 20140922
  Receipt Date: 20140922
  Transmission Date: 20150326
  Serious: Yes (Other)
  Sender: FDA-Public Use
  Company Number: None

PATIENT
  Age: 33 Year
  Sex: Male
  Weight: 113.4 kg

DRUGS (1)
  1. LUBRICANT HONEY LUBE [Suspect]
     Active Substance: HONEY
     Indication: SEXUALLY ACTIVE
     Dates: start: 20140820, end: 20140821

REACTIONS (4)
  - Product odour abnormal [None]
  - Genital pain [None]
  - Genital infection [None]
  - Pruritus genital [None]
